FAERS Safety Report 14742126 (Version 1)
Quarter: 2018Q2

REPORT INFORMATION
  Report Type: Spontaneous
  Country: FR (occurrence: FR)
  Receive Date: 20180410
  Receipt Date: 20180410
  Transmission Date: 20180711
  Serious: Yes (Other)
  Sender: FDA-Public Use
  Company Number: FR-MYLANLABS-2018M1023495

PATIENT
  Age: 25 Year
  Sex: Male
  Weight: 70 kg

DRUGS (3)
  1. FLOXYFRAL [Suspect]
     Active Substance: FLUVOXAMINE
     Indication: SCHIZOPHRENIA
     Dosage: 50 MG, QD
     Route: 048
     Dates: start: 20180116, end: 20180130
  2. CLOZAPINE. [Interacting]
     Active Substance: CLOZAPINE
     Indication: SCHIZOPHRENIA
     Dosage: 525 MG, QD
     Route: 048
     Dates: start: 2017
  3. CLOZAPINE. [Interacting]
     Active Substance: CLOZAPINE
     Dosage: UNK
     Route: 048
     Dates: start: 2018

REACTIONS (4)
  - Orthostatic hypotension [Recovered/Resolved]
  - Myoclonus [Recovered/Resolved]
  - Muscle spasms [Recovered/Resolved]
  - Hypertonia [Recovered/Resolved]

NARRATIVE: CASE EVENT DATE: 20180130
